FAERS Safety Report 12531032 (Version 2)
Quarter: 2016Q3

REPORT INFORMATION
  Report Type: Spontaneous
  Country: CH (occurrence: CH)
  Receive Date: 20160706
  Receipt Date: 20160829
  Transmission Date: 20161109
  Serious: Yes (Death, Hospitalization)
  Sender: FDA-Public Use
  Company Number: CH-PFIZER INC-2016330361

PATIENT
  Age: 94 Year
  Sex: Female
  Weight: 58 kg

DRUGS (2)
  1. HEPARIN [Concomitant]
     Active Substance: HEPARIN SODIUM
     Indication: PROPHYLAXIS
     Dosage: UNK
  2. ARGATRA [Suspect]
     Active Substance: ARGATROBAN
     Indication: HEPARIN-INDUCED THROMBOCYTOPENIA
     Dosage: 116 UG, PER MINUTE
     Route: 042

REACTIONS (4)
  - Death [Fatal]
  - Ecchymosis [Unknown]
  - Accidental overdose [Fatal]
  - Petechiae [Unknown]
